FAERS Safety Report 7493205-7 (Version None)
Quarter: 2011Q2

REPORT INFORMATION
  Report Type: 
  Country: None (occurrence: None)
  Receive Date: 20110520
  Receipt Date: 20101222
  Transmission Date: 20111010
  Serious: Yes (Hospitalization, Other)
  Sender: FDA-Public Use
  Company Number: US-BAYER-201037531NA

PATIENT
  Age: 20 Year
  Sex: Female
  Weight: 83.9 kg

DRUGS (10)
  1. PROMETAZIN [Concomitant]
     Dosage: UNK UNK, QD
     Dates: start: 20071022
  2. CIPROFLOXACIN [Concomitant]
     Dosage: UNK
     Dates: start: 20071001
  3. YASMIN [Suspect]
     Indication: CONTRACEPTION
     Dosage: UNK UNK, UNK
     Route: 048
     Dates: start: 20050818, end: 20080901
  4. PREDNISONE [Concomitant]
  5. AMOXICILLIN [Concomitant]
     Dosage: UNK
     Dates: start: 20050101
  6. IBUPROFEN [Concomitant]
     Dosage: UNK
     Dates: start: 20000101, end: 20100101
  7. LORATADINE [Concomitant]
     Dosage: UNK
     Dates: start: 20060101
  8. DROSPIRENONE AND ETHINYL ESTRADIOL [Suspect]
     Dosage: UNK
     Dates: start: 20050818, end: 20080801
  9. CEPHALEXIN [Concomitant]
     Dosage: UNK
     Dates: start: 20060101
  10. CIPROFLOXACIN [Concomitant]
     Dosage: UNK
     Dates: start: 20070701

REACTIONS (7)
  - CHOLECYSTITIS CHRONIC [None]
  - CHOLELITHIASIS [None]
  - ABDOMINAL PAIN UPPER [None]
  - DIARRHOEA [None]
  - VOMITING [None]
  - PSYCHIATRIC SYMPTOM [None]
  - WEIGHT DECREASED [None]
